FAERS Safety Report 17940643 (Version 1)
Quarter: 2020Q2

REPORT INFORMATION
  Report Type: Spontaneous
  Country: SE (occurrence: SE)
  Receive Date: 20200625
  Receipt Date: 20200625
  Transmission Date: 20200714
  Serious: Yes (Other)
  Sender: FDA-Public Use
  Company Number: SE-SA-2020SA159423

PATIENT

DRUGS (3)
  1. LYXUMIA [Suspect]
     Active Substance: LIXISENATIDE
     Indication: TYPE 2 DIABETES MELLITUS
     Dosage: 20 UG, QD
     Route: 065
     Dates: start: 20190301, end: 201908
  2. MINDIAB [Concomitant]
     Active Substance: GLIPIZIDE
     Route: 065
  3. METFORMIN [Concomitant]
     Active Substance: METFORMIN HYDROCHLORIDE
     Dosage: 500 MG
     Route: 065
     Dates: start: 2005

REACTIONS (2)
  - Balance disorder [Not Recovered/Not Resolved]
  - Gait disturbance [Not Recovered/Not Resolved]

NARRATIVE: CASE EVENT DATE: 2019
